FAERS Safety Report 6269629-2 (Version None)
Quarter: 2009Q3

REPORT INFORMATION
  Report Type: 
  Country: None (occurrence: None)
  Receive Date: 20090714
  Receipt Date: 20090708
  Transmission Date: 20100115
  Serious: Yes (Hospitalization)
  Sender: FDA-Public Use
  Company Number: 319820

PATIENT
  Age: 7 Year
  Sex: Male

DRUGS (7)
  1. PROPOFOL [Suspect]
     Indication: INDUCTION OF ANAESTHESIA
     Dosage: 70 MG,
  2. ATROPINE [Concomitant]
  3. FENTANYL-100 [Concomitant]
  4. VECURONIUM BROMIDE [Concomitant]
  5. ONDANSETRON [Concomitant]
  6. PROSTIGMIN BROMIDE [Concomitant]
  7. VALPROIC ACID [Concomitant]

REACTIONS (1)
  - PRIAPISM [None]
